FAERS Safety Report 13699009 (Version 1)
Quarter: 2017Q2

REPORT INFORMATION
  Report Type: Spontaneous
  Country: BR (occurrence: BR)
  Receive Date: 20170628
  Receipt Date: 20170628
  Transmission Date: 20170830
  Serious: Yes (Other)
  Sender: FDA-Public Use
  Company Number: BR-CELGENEUS-BRA-20170607144

PATIENT
  Age: 77 Year
  Sex: Male
  Weight: 74 kg

DRUGS (3)
  1. VIDAZA [Suspect]
     Active Substance: AZACITIDINE
     Indication: MYELODYSPLASTIC SYNDROME
     Dosage: 75 MILLIGRAM
     Route: 041
     Dates: start: 2017
  2. ATENOLOL. [Suspect]
     Active Substance: ATENOLOL
     Indication: HYPERTENSION
     Dosage: 2 TABLET
     Route: 065
     Dates: start: 2017
  3. METFORMIN [Suspect]
     Active Substance: METFORMIN HYDROCHLORIDE
     Indication: DIABETES MELLITUS
     Dosage: 1 TABLET
     Route: 065
     Dates: start: 2017

REACTIONS (1)
  - Skin reaction [Recovered/Resolved]

NARRATIVE: CASE EVENT DATE: 20170526
